FAERS Safety Report 18791163 (Version 1)
Quarter: 2021Q1

REPORT INFORMATION
  Report Type: Report from Study
  Country: US (occurrence: US)
  Receive Date: 20210126
  Receipt Date: 20210126
  Transmission Date: 20210419
  Serious: Yes (Other)
  Sender: FDA-Public Use
  Company Number: US-GILEAD-2021-0513567

PATIENT
  Age: 44 Year
  Sex: Male

DRUGS (22)
  1. AZTREONAM LYSINE [Suspect]
     Active Substance: AZTREONAM LYSINE
     Indication: CYSTIC FIBROSIS
     Dosage: UNK
     Route: 065
  2. LANTUS [Concomitant]
     Active Substance: INSULIN GLARGINE
  3. IPRATROPIUM BROMIDE. [Concomitant]
     Active Substance: IPRATROPIUM BROMIDE
  4. ENSURE ORIGINAL [Concomitant]
  5. ALBUTEROL [SALBUTAMOL SULFATE] [Concomitant]
     Active Substance: ALBUTEROL SULFATE
  6. SPIRIVA [Concomitant]
     Active Substance: TIOTROPIUM BROMIDE MONOHYDRATE
  7. TRIKAFTA [Concomitant]
     Active Substance: ELEXACAFTOR\IVACAFTOR\TEZACAFTOR
  8. AZITHROMYCIN ANHYDROUS. [Concomitant]
     Active Substance: AZITHROMYCIN ANHYDROUS
  9. SILDENAFIL. [Concomitant]
     Active Substance: SILDENAFIL
  10. VENTOLIN [Concomitant]
     Active Substance: ALBUTEROL SULFATE
  11. SYMBICORT [Concomitant]
     Active Substance: BUDESONIDE\FORMOTEROL FUMARATE DIHYDRATE
  12. FLONASE [Concomitant]
     Active Substance: FLUTICASONE PROPIONATE
  13. AZTREONAM LYSINE [Suspect]
     Active Substance: AZTREONAM LYSINE
     Indication: PSEUDOMONAS INFECTION
  14. TOBI PODHALER [Concomitant]
     Active Substance: TOBRAMYCIN
  15. SODIUM CHLORIDE. [Concomitant]
     Active Substance: SODIUM CHLORIDE
  16. THERMOTABS [Concomitant]
  17. CHOICEFUL VITAMINS [Concomitant]
  18. PULMOZYME [Concomitant]
     Active Substance: DORNASE ALFA
  19. ATROVENT [Concomitant]
     Active Substance: IPRATROPIUM BROMIDE
  20. VITAMIN C [Concomitant]
     Active Substance: ASCORBIC ACID
  21. OMEPRAZOLE. [Concomitant]
     Active Substance: OMEPRAZOLE
  22. PEG 3350 [Concomitant]
     Active Substance: POLYETHYLENE GLYCOL 3350

REACTIONS (4)
  - Liver disorder [Not Recovered/Not Resolved]
  - Computerised tomogram liver abnormal [Unknown]
  - Splenomegaly [Unknown]
  - Cystic fibrosis hepatic disease [Unknown]

NARRATIVE: CASE EVENT DATE: 2021
